FAERS Safety Report 14172103 (Version 1)
Quarter: 2017Q4

REPORT INFORMATION
  Report Type: Report from Study
  Country: None (occurrence: DE)
  Receive Date: 20171108
  Receipt Date: 20171108
  Transmission Date: 20180321
  Serious: Yes (Hospitalization)
  Sender: FDA-Public Use
  Company Number: DE-ABBVIE-17K-062-2153986-00

PATIENT
  Age: 82 Year
  Sex: Female

DRUGS (1)
  1. DUODOPA [Suspect]
     Active Substance: CARBIDOPA\LEVODOPA
     Indication: PARKINSON^S DISEASE
     Dosage: MD 3 ML ??CRD 1.3 ML/H ??CRN 0.8 ML/H ??ED 0.5 ML
     Route: 050
     Dates: start: 20150727

REACTIONS (2)
  - Faecal vomiting [Unknown]
  - Acute abdomen [Not Recovered/Not Resolved]

NARRATIVE: CASE EVENT DATE: 20171106
